FAERS Safety Report 21027936 (Version 2)
Quarter: 2022Q3

REPORT INFORMATION
  Report Type: Spontaneous
  Country: FR (occurrence: FR)
  Receive Date: 20220630
  Receipt Date: 20220706
  Transmission Date: 20221027
  Serious: No
  Sender: FDA-Public Use
  Company Number: FR-PFIZER INC-202200898053

PATIENT
  Age: 84 Year
  Sex: Female

DRUGS (2)
  1. PAXLOVID [Suspect]
     Active Substance: NIRMATRELVIR\RITONAVIR
     Indication: COVID-19 treatment
     Dosage: 1 DF, 2X/DAY (ONE PINK TABLET EVERY 12 HOURS FOR 5 DAYS)
  2. PAXLOVID [Suspect]
     Active Substance: NIRMATRELVIR\RITONAVIR
     Dosage: 2 PINK TABLETS AND 1 WHITE TABLET IN THE EVENING

REACTIONS (3)
  - Incorrect dose administered [Unknown]
  - Product prescribing error [Unknown]
  - Off label use [Unknown]
